FAERS Safety Report 16178305 (Version 1)
Quarter: 2019Q2

REPORT INFORMATION
  Report Type: Spontaneous
  Country: GB (occurrence: GB)
  Receive Date: 20190410
  Receipt Date: 20190410
  Transmission Date: 20190711
  Serious: Yes (Other)
  Sender: FDA-Public Use
  Company Number: GB-AUROBINDO-AUR-APL-2019-018488

PATIENT

DRUGS (11)
  1. LOPERAMIDE CAPSULE, HARD [Suspect]
     Active Substance: LOPERAMIDE
     Indication: DIARRHOEA
     Dosage: 2 MILLIGRAM, AS NECESSARY
     Route: 048
  2. DOCETAXEL. [Suspect]
     Active Substance: DOCETAXEL
     Dosage: 63 MILLIGRAM, EVERY WEEK,DOSE REDUCED THAN PREVIOUS CYCLE
     Route: 042
     Dates: start: 20181011
  3. PERTUZUMAB. [Suspect]
     Active Substance: PERTUZUMAB
     Indication: BREAST CANCER
     Dosage: 420 MILLIGRAM, 3 WEEKS
     Route: 042
     Dates: start: 20181011
  4. TRASTUZUMAB. [Suspect]
     Active Substance: TRASTUZUMAB
     Indication: BREAST CANCER
     Dosage: 425 MILLIGRAM, 3 WEEKS
     Route: 042
     Dates: start: 20181011
  5. DOCETAXEL. [Suspect]
     Active Substance: DOCETAXEL
     Indication: BREAST CANCER
     Dosage: UNK,PREVIOUS CYCLE
     Route: 065
  6. WATER FOR INJECTIONS [Suspect]
     Active Substance: WATER
     Indication: MEDICATION DILUTION
     Dosage: UNK (1), 3 WEEKS
     Route: 042
     Dates: start: 20181011
  7. SODIUM CHLORIDE. [Suspect]
     Active Substance: SODIUM CHLORIDE
     Dosage: UNK (1), EVERY WEEK,WITH DOCETAXEL HOSPIRA
     Route: 042
     Dates: start: 20181011
  8. COLESTIPOL [Suspect]
     Active Substance: COLESTIPOL
     Indication: DIARRHOEA
     Dosage: UNK (2), DAILY, SACHETS
     Route: 065
     Dates: start: 20181011
  9. SODIUM CHLORIDE. [Suspect]
     Active Substance: SODIUM CHLORIDE
     Indication: MEDICATION DILUTION
     Dosage: UNK (1), 3 WEEKS, WITH PERTUZUMAB
     Route: 042
     Dates: start: 20181011
  10. SODIUM CHLORIDE. [Suspect]
     Active Substance: SODIUM CHLORIDE
     Dosage: UNK (1), 3 WEEKS,WITH TRASTUZUMAB
     Route: 042
     Dates: start: 20181011
  11. MAGNASPARTATE [Concomitant]
     Indication: BLOOD MAGNESIUM DECREASED
     Dosage: UNK (2), DAILY,SACHETS
     Route: 048
     Dates: start: 20181006, end: 20181010

REACTIONS (3)
  - Blood magnesium decreased [Recovered/Resolved]
  - Malaise [Recovered/Resolved]
  - Body temperature decreased [Recovered/Resolved]

NARRATIVE: CASE EVENT DATE: 20181031
